FAERS Safety Report 16211062 (Version 1)
Quarter: 2019Q2

REPORT INFORMATION
  Report Type: Spontaneous
  Country: US (occurrence: US)
  Receive Date: 20190418
  Receipt Date: 20190418
  Transmission Date: 20190711
  Serious: Yes (Hospitalization, Other)
  Sender: FDA-Public Use
  Company Number: US-ABBVIE-19K-163-2749453-00

PATIENT
  Age: 14 Year
  Sex: Male
  Weight: 64.6 kg

DRUGS (1)
  1. HUMIRA [Suspect]
     Active Substance: ADALIMUMAB
     Indication: CROHN^S DISEASE
     Route: 058
     Dates: start: 201810, end: 20190327

REACTIONS (2)
  - Oedema peripheral [Unknown]
  - Demyelinating polyneuropathy [Unknown]

NARRATIVE: CASE EVENT DATE: 2019
